FAERS Safety Report 12510782 (Version 2)
Quarter: 2016Q2

REPORT INFORMATION
  Report Type: Spontaneous
  Country: US (occurrence: US)
  Receive Date: 20160629
  Receipt Date: 20160630
  Transmission Date: 20160815
  Serious: Yes (Other)
  Sender: FDA-Public Use
  Company Number: US-TEVA-670522USA

PATIENT
  Age: 29 Year
  Sex: Male

DRUGS (1)
  1. ZECUITY [Suspect]
     Active Substance: SUMATRIPTAN SUCCINATE
     Route: 062
     Dates: start: 20160425

REACTIONS (6)
  - Incorrect drug administration duration [Unknown]
  - Blood blister [Unknown]
  - Application site pain [Unknown]
  - Application site scar [Unknown]
  - Application site dryness [Unknown]
  - Application site vesicles [Unknown]

NARRATIVE: CASE EVENT DATE: 20160425
